FAERS Safety Report 5126184-8 (Version None)
Quarter: 2006Q3

REPORT INFORMATION
  Report Type: 
  Country: None (occurrence: None)
  Receive Date: 20060825
  Receipt Date: 20050719
  Transmission Date: 20061208
  Serious: Yes (Other)
  Sender: FDA-Public Use
  Company Number: HQWYE401622JUL05

PATIENT
  Age: 5 Year
  Sex: Male
  Weight: 18.61 kg

DRUGS (2)
  1. CHILDREN'S ADVIL [Suspect]
     Indication: PHARYNGITIS STREPTOCOCCAL
     Dosage: 1 1/2 TEASPOONS X 1, ORAL
     Route: 048
     Dates: start: 20050715, end: 20050715
  2. PENICILLIN [Concomitant]

REACTIONS (1)
  - RETCHING [None]
